FAERS Safety Report 15202509 (Version 1)
Quarter: 2018Q3

REPORT INFORMATION
  Report Type: Spontaneous
  Country: US (occurrence: US)
  Receive Date: 20180627
  Receipt Date: 20180627
  Transmission Date: 20181010
  Serious: Yes (Hospitalization)
  Sender: FDA-Public Use
  Company Number: None

PATIENT
  Age: 44 Year
  Sex: Female
  Weight: 99.9 kg

DRUGS (3)
  1. TYLENOL [Concomitant]
     Active Substance: ACETAMINOPHEN
  2. BREO ELLIPTA (FLUTICASONE FUROATE 100 MCG AND VILANTEROL 25 MCG INHALA [Concomitant]
  3. DOXYCYCLINE HYCLATE 100 MG TABLETS [Suspect]
     Active Substance: DOXYCYCLINE HYCLATE
     Indication: LYME DISEASE
     Dosage: ?          QUANTITY:28 TABLET(S);?
     Route: 048
     Dates: start: 20180615, end: 20180626

REACTIONS (4)
  - Syncope [None]
  - Intracranial pressure increased [None]
  - Hepatic function abnormal [None]
  - Blindness [None]

NARRATIVE: CASE EVENT DATE: 20180626
